FAERS Safety Report 21194016 (Version 2)
Quarter: 2022Q3

REPORT INFORMATION
  Report Type: Report from Study
  Country: CN (occurrence: CN)
  Receive Date: 20220810
  Receipt Date: 20220907
  Transmission Date: 20221027
  Serious: Yes (Hospitalization, Other)
  Sender: FDA-Public Use
  Company Number: CN-NOVARTISPH-NVSC2022CN177660

PATIENT
  Age: 53 Year
  Sex: Female
  Weight: 50 kg

DRUGS (42)
  1. TYKERB [Suspect]
     Active Substance: LAPATINIB DITOSYLATE
     Indication: Breast cancer metastatic
     Dosage: 1250 MG, QD
     Route: 048
     Dates: start: 20210429, end: 20210623
  2. TYKERB [Suspect]
     Active Substance: LAPATINIB DITOSYLATE
     Dosage: 500 MG, QD
     Route: 048
     Dates: start: 20210927, end: 20210927
  3. TYKERB [Suspect]
     Active Substance: LAPATINIB DITOSYLATE
     Dosage: 1000 MG, QD
     Route: 048
     Dates: start: 20210928, end: 20220715
  4. CAPECITABINE [Suspect]
     Active Substance: CAPECITABINE
     Indication: Breast cancer metastatic
     Dosage: 3000 MG, QD (ONCE EVERY 12 HOURS)
     Route: 048
     Dates: start: 20210429, end: 20210505
  5. CAPECITABINE [Suspect]
     Active Substance: CAPECITABINE
     Dosage: 1500 MG, QD (NOT TAKEN IN THE MORNING)
     Route: 048
     Dates: start: 20210506, end: 20210506
  6. CAPECITABINE [Suspect]
     Active Substance: CAPECITABINE
     Dosage: 3000 MG, QD (ONCE EVERY 12 HOURS)
     Route: 048
     Dates: start: 20210507, end: 20210512
  7. CAPECITABINE [Suspect]
     Active Substance: CAPECITABINE
     Dosage: 3000 MG, QD (ONCE EVERY 12 HOURS)
     Route: 048
     Dates: start: 20210523, end: 20210605
  8. CAPECITABINE [Suspect]
     Active Substance: CAPECITABINE
     Dosage: 3000 MG, QD (ONCE EVERY 12 HOURS)
     Route: 048
     Dates: start: 20210610, end: 20210610
  9. CAPECITABINE [Suspect]
     Active Substance: CAPECITABINE
     Dosage: 3000 MG, QD (ONCE EVERY 12 HOURS)
     Route: 048
     Dates: start: 20210614, end: 20210620
  10. CAPECITABINE [Suspect]
     Active Substance: CAPECITABINE
     Dosage: 2500 MG, QD (ONCE EVERY 12 HOURS)
     Route: 048
     Dates: start: 20210614, end: 20210623
  11. CAPECITABINE [Suspect]
     Active Substance: CAPECITABINE
     Dosage: 1500 MG, QD (NOT TAKEN IN THE MORNING)
     Route: 048
     Dates: start: 20210716, end: 20210726
  12. CAPECITABINE [Suspect]
     Active Substance: CAPECITABINE
     Dosage: 2500 MG, QD (ONCE EVERY 12 HOURS)
     Route: 048
     Dates: start: 20210727, end: 20210807
  13. CAPECITABINE [Suspect]
     Active Substance: CAPECITABINE
     Dosage: 1000 MG, QD (NOT TAKEN IN THE EVENING)
     Route: 048
     Dates: start: 20210808, end: 20210809
  14. CAPECITABINE [Suspect]
     Active Substance: CAPECITABINE
     Dosage: 1500 MG, QD (NOT TAKEN IN THE MORNING)
     Route: 048
     Dates: start: 20210816, end: 20210816
  15. CAPECITABINE [Suspect]
     Active Substance: CAPECITABINE
     Dosage: 2500 MG, QD (ONCE EVERY 12 HOURS)
     Route: 048
     Dates: start: 20210817, end: 20210828
  16. CAPECITABINE [Suspect]
     Active Substance: CAPECITABINE
     Dosage: 1500 MG, QD (NOT TAKEN IN THE MORNING)
     Route: 048
     Dates: start: 20210907, end: 20210907
  17. CAPECITABINE [Suspect]
     Active Substance: CAPECITABINE
     Dosage: 2500 MG, QD (ONCE EVERY 12 HOURS)
     Route: 048
     Dates: start: 20210908, end: 20210920
  18. CAPECITABINE [Suspect]
     Active Substance: CAPECITABINE
     Dosage: 2500 MG, QD (ONCE EVERY 12 HOURS)
     Route: 048
     Dates: start: 20210928, end: 20211011
  19. CAPECITABINE [Suspect]
     Active Substance: CAPECITABINE
     Dosage: 2000 MG, QD (ONCE EVERY 12 HOURS)
     Route: 048
     Dates: start: 20211019, end: 20211020
  20. CAPECITABINE [Suspect]
     Active Substance: CAPECITABINE
     Dosage: 1000 MG, QD (MISSED DOSE)
     Route: 048
     Dates: start: 20211021, end: 20211021
  21. CAPECITABINE [Suspect]
     Active Substance: CAPECITABINE
     Dosage: 2000 MG, QD (ONCE EVERY 12 HOURS)
     Route: 048
     Dates: start: 20211022, end: 20211101
  22. CAPECITABINE [Suspect]
     Active Substance: CAPECITABINE
     Dosage: 2000 MG, QD (ONCE EVERY 12 HOURS)
     Route: 048
     Dates: start: 20211109, end: 20211113
  23. CAPECITABINE [Suspect]
     Active Substance: CAPECITABINE
     Dosage: 1000 MG, QD (MISSED DOSE)
     Route: 048
     Dates: start: 20211114, end: 20211114
  24. CAPECITABINE [Suspect]
     Active Substance: CAPECITABINE
     Dosage: 2000 MG, QD (ONCE EVERY 12 HOURS)
     Route: 048
     Dates: start: 20211115, end: 20211122
  25. CAPECITABINE [Suspect]
     Active Substance: CAPECITABINE
     Dosage: 1500 MG, QD (ONCE EVERY 12 HOURS)
     Route: 048
     Dates: start: 20211130, end: 20211213
  26. CAPECITABINE [Suspect]
     Active Substance: CAPECITABINE
     Dosage: 1500 MG, QD (ONCE EVERY 12 HOURS)
     Route: 048
     Dates: start: 20211221, end: 20220103
  27. CAPECITABINE [Suspect]
     Active Substance: CAPECITABINE
     Dosage: 1500 MG, QD (ONCE EVERY 12 HOURS)
     Route: 048
     Dates: start: 20220111, end: 20220124
  28. CAPECITABINE [Suspect]
     Active Substance: CAPECITABINE
     Dosage: 1000 MG, QD
     Route: 048
     Dates: start: 20220125, end: 20220125
  29. CAPECITABINE [Suspect]
     Active Substance: CAPECITABINE
     Dosage: 1500 MG, QD (ONCE EVERY 12 HOURS)
     Route: 048
     Dates: start: 20220202, end: 20220215
  30. CAPECITABINE [Suspect]
     Active Substance: CAPECITABINE
     Dosage: 1000 MG, QD (OVERDOSE)
     Route: 048
     Dates: start: 20220216, end: 20220216
  31. CAPECITABINE [Suspect]
     Active Substance: CAPECITABINE
     Dosage: 1500 MG, QD (ONCE EVERY 12 HOURS)
     Route: 048
     Dates: start: 20220224, end: 20220309
  32. CAPECITABINE [Suspect]
     Active Substance: CAPECITABINE
     Dosage: 1500 MG, QD (ONCE EVERY 12 HOURS)
     Route: 048
  33. CAPECITABINE [Suspect]
     Active Substance: CAPECITABINE
     Dosage: 1500 MG, QD (ONCE EVERY 12 HOURS)
     Route: 048
     Dates: start: 20220317, end: 20220330
  34. CAPECITABINE [Suspect]
     Active Substance: CAPECITABINE
     Dosage: 1500 MG, QD (ONCE EVERY 12 HOURS)
     Route: 048
     Dates: start: 20220407, end: 20220420
  35. CAPECITABINE [Suspect]
     Active Substance: CAPECITABINE
     Dosage: 1500 MG, QD (ONCE EVERY 12 HOURS)
     Route: 048
     Dates: start: 20220428, end: 20220511
  36. CAPECITABINE [Suspect]
     Active Substance: CAPECITABINE
     Dosage: 1500 MG, QD (ONCE EVERY 12 HOURS)
     Route: 048
     Dates: start: 20220519, end: 20220601
  37. CAPECITABINE [Suspect]
     Active Substance: CAPECITABINE
     Dosage: 1500 MG, QD (ONCE EVERY 12 HOURS)
     Route: 048
     Dates: start: 20220609, end: 20220622
  38. CAPECITABINE [Suspect]
     Active Substance: CAPECITABINE
     Dosage: 1500 MG, QD (ONCE EVERY 12 HOURS)
     Route: 048
     Dates: start: 20220630, end: 20220713
  39. CAPECITABINE [Suspect]
     Active Substance: CAPECITABINE
     Dosage: 500 MG, QD
     Route: 048
     Dates: start: 20220714, end: 20220714
  40. AMOXICILLIN [Concomitant]
     Active Substance: AMOXICILLIN
     Indication: Product used for unknown indication
     Dosage: UNK (SPECIFIC DOSE UNKNOWN)
     Route: 048
     Dates: start: 20220718
  41. CEFTAZIDIME [Concomitant]
     Active Substance: CEFTAZIDIME
     Indication: Product used for unknown indication
     Dosage: 3 G, BID
     Route: 041
     Dates: start: 20220719, end: 20220725
  42. MUPIROCIN [Concomitant]
     Active Substance: MUPIROCIN
     Indication: Infection
     Dosage: 5 G, TID (APPROPRIATE AMOUNT, TID, FOR EXTERNAL USE)
     Route: 065
     Dates: start: 20220721, end: 20220805

REACTIONS (12)
  - Abdominal wound dehiscence [Recovered/Resolved]
  - Wound complication [Unknown]
  - Erythema [Unknown]
  - Malignant neoplasm progression [Unknown]
  - Wound infection [Unknown]
  - Asthenia [Unknown]
  - Wound secretion [Unknown]
  - Purulent discharge [Unknown]
  - Breast cancer metastatic [Unknown]
  - Haematocrit decreased [Unknown]
  - Red blood cell count decreased [Unknown]
  - White blood cell count decreased [Recovered/Resolved]

NARRATIVE: CASE EVENT DATE: 20220704
